FAERS Safety Report 12706873 (Version 1)
Quarter: 2016Q3

REPORT INFORMATION
  Report Type: Spontaneous
  Country: US (occurrence: US)
  Receive Date: 20160901
  Receipt Date: 20160901
  Transmission Date: 20161109
  Serious: No
  Sender: FDA-Public Use
  Company Number: US-VIIV HEALTHCARE LIMITED-US2016125748

PATIENT
  Age: 59 Year
  Sex: Male

DRUGS (2)
  1. EPZICOM [Suspect]
     Active Substance: ABACAVIR SULFATE\LAMIVUDINE
     Indication: HIV INFECTION
     Dosage: UNK UNK, QD
     Route: 048
     Dates: start: 2013
  2. ISENTRESS [Concomitant]
     Active Substance: RALTEGRAVIR POTASSIUM

REACTIONS (3)
  - Lipohypertrophy [Not Recovered/Not Resolved]
  - Breast enlargement [Not Recovered/Not Resolved]
  - Drug screen positive [Unknown]

NARRATIVE: CASE EVENT DATE: 20151130
